FAERS Safety Report 20212439 (Version 1)
Quarter: 2021Q4

REPORT INFORMATION
  Report Type: Spontaneous
  Country: FR (occurrence: FR)
  Receive Date: 20211221
  Receipt Date: 20211221
  Transmission Date: 20220303
  Serious: Yes (Other)
  Sender: FDA-Public Use
  Company Number: FR-PFIZER INC-202101739622

PATIENT
  Age: 67 Year
  Sex: Male

DRUGS (1)
  1. SUTENT [Suspect]
     Active Substance: SUNITINIB MALATE
     Dosage: 37.5 MG, CYCLIC: 2 WEEKS/3

REACTIONS (5)
  - Deafness [Recovered/Resolved]
  - Otitis media [Recovered/Resolved]
  - Diarrhoea [Unknown]
  - Hypertension [Unknown]
  - Vitamin B12 deficiency [Unknown]

NARRATIVE: CASE EVENT DATE: 20210101
